FAERS Safety Report 10957568 (Version 1)
Quarter: 2015Q1

REPORT INFORMATION
  Report Type: Spontaneous
  Country: US (occurrence: None)
  Receive Date: 20150325
  Receipt Date: 20150325
  Transmission Date: 20150721
  Serious: Yes (Other)
  Sender: FDA-Public Use
  Company Number: None

PATIENT
  Age: 62 Year
  Sex: Female

DRUGS (5)
  1. ZOCOR [Concomitant]
     Active Substance: SIMVASTATIN
  2. VITAMIN D [Concomitant]
     Active Substance: CHOLECALCIFEROL
  3. TECFIDERA [Suspect]
     Active Substance: DIMETHYL FUMARATE
     Indication: MULTIPLE SCLEROSIS
     Route: 048
     Dates: start: 20140320, end: 20140329
  4. LISINOPRIL. [Concomitant]
     Active Substance: LISINOPRIL
  5. TENS UNIT [Concomitant]

REACTIONS (3)
  - Diarrhoea [None]
  - Tinnitus [None]
  - Hearing impaired [None]

NARRATIVE: CASE EVENT DATE: 20140304
